FAERS Safety Report 7134688-1 (Version None)
Quarter: 2010Q4

REPORT INFORMATION
  Report Type: 
  Country: None (occurrence: None)
  Receive Date: 20101203
  Receipt Date: 20101124
  Transmission Date: 20110411
  Serious: Yes (Life-Threatening)
  Sender: FDA-Public Use
  Company Number: JP-ROCHE-719597

PATIENT
  Sex: Female
  Weight: 57 kg

DRUGS (13)
  1. XELODA [Suspect]
     Indication: COLON CANCER METASTATIC
     Dosage: DRUG REPORTED AS XELODA 300, 2 WEEKS ADMINISTRATION FOLLOWED BY 1 WEEK REST
     Route: 048
     Dates: start: 20100423, end: 20100101
  2. NAIXAN [Suspect]
     Route: 048
     Dates: start: 20100414
  3. AVASTIN [Suspect]
     Indication: COLON CANCER METASTATIC
     Route: 041
     Dates: start: 20100423, end: 20100517
  4. PREDNISOLONE [Suspect]
     Indication: SYSTEMIC LUPUS ERYTHEMATOSUS
     Dosage: DRUG REPORTED: PREDOHAN
     Route: 048
     Dates: start: 19800101
  5. ELPLAT [Concomitant]
     Route: 041
     Dates: start: 20100423
  6. GASTER D [Concomitant]
     Route: 048
     Dates: start: 20070101
  7. FRANDOL [Concomitant]
     Route: 048
  8. ALFAROL [Concomitant]
     Route: 048
  9. ADALAT CC [Concomitant]
     Dosage: FORM: SUSTAINED RELEASE TABLET
     Route: 048
  10. SERMION [Concomitant]
     Route: 048
  11. DIOVAN [Concomitant]
     Route: 048
  12. DIOVAN [Concomitant]
     Route: 048
  13. SLOW-FE [Concomitant]
     Dosage: FORM: SUSTAINED RELEASE TABLET
     Route: 048

REACTIONS (6)
  - ABSCESS [None]
  - ANAEMIA [None]
  - BACK PAIN [None]
  - ENTEROCOLITIS [None]
  - LARGE INTESTINE PERFORATION [None]
  - LIVER ABSCESS [None]
